FAERS Safety Report 8590814 (Version 3)
Quarter: 2013Q1

REPORT INFORMATION
  Report Type: Spontaneous
  Country: US (occurrence: US)
  Receive Date: 20120601
  Receipt Date: 20130311
  Transmission Date: 20140127
  Serious: Yes (Hospitalization, Disabling, Other)
  Sender: FDA-Public Use
  Company Number: US-BAYER-2012-053755

PATIENT
  Age: 22 Year
  Sex: Female
  Weight: 45.35 kg

DRUGS (43)
  1. YASMIN [Suspect]
     Dosage: UNK
     Dates: start: 2007, end: 2011
  2. YAZ [Suspect]
     Indication: ACNE
  3. YAZ [Suspect]
     Indication: MENSTRUATION IRREGULAR
  4. CLARITIN [Concomitant]
  5. ADVIL [Concomitant]
  6. SINGULAIR [Concomitant]
  7. ALBUTEROL [Concomitant]
  8. PHENERGAN [Concomitant]
  9. RANITIDINE [Concomitant]
  10. MEDROL [Concomitant]
  11. PREDNISOLONE [Concomitant]
  12. PRO-AIR [Concomitant]
  13. VIAGRA [Concomitant]
     Dosage: 25 MG, TID
     Route: 048
  14. PROGRAF [Concomitant]
     Dosage: 9 MG, BID
     Route: 048
  15. CELLCEPT [Concomitant]
     Dosage: 1250 MG, BID
     Route: 048
  16. NORVASC [Concomitant]
     Dosage: 10 MG, DAILY
     Route: 048
  17. PRAVACHOL [Concomitant]
     Dosage: 10 MG, HS
     Route: 048
  18. LASIX [Concomitant]
  19. ATIVAN [Concomitant]
  20. REGLAN [Concomitant]
  21. MORPHINE [Concomitant]
  22. NITROSTAT [Concomitant]
  23. AMBIEN [Concomitant]
  24. CLINDAMYCIN [Concomitant]
  25. BENADRYL WITH CELLCEPT [Concomitant]
  26. DOCUSATE [Concomitant]
  27. DURAGESIC [Concomitant]
  28. MAGNESIUM [Concomitant]
  29. MICONAZOLE [Concomitant]
  30. MULTIVITAMIN [Concomitant]
  31. NYSTATIN [Concomitant]
  32. PROTONIX [Concomitant]
  33. ZOLOFT [Concomitant]
  34. SILVER SULFADIAZINE [Concomitant]
  35. BACTRIM [Concomitant]
  36. VALCYTE [Concomitant]
  37. XANAX [Concomitant]
  38. LOMOTIL + NEOMYCIN [Concomitant]
  39. ZOFRAN [Concomitant]
  40. PERCOCET [Concomitant]
  41. SCOPOLAMIN [Concomitant]
  42. SENOKOT [Concomitant]
  43. ZITHROMAX [Concomitant]

REACTIONS (15)
  - Cerebrovascular accident [None]
  - Myocardial infarction [None]
  - Intracardiac thrombus [None]
  - Heart transplant [None]
  - Deep vein thrombosis [None]
  - Pulmonary embolism [None]
  - Leg amputation [None]
  - Toe amputation [None]
  - Coccygectomy [None]
  - Injury [None]
  - Pain [None]
  - Pain [None]
  - General physical health deterioration [None]
  - Anxiety [None]
  - Emotional distress [None]
